FAERS Safety Report 23101519 (Version 3)
Quarter: 2023Q4

REPORT INFORMATION
  Report Type: Report from Study
  Country: GB (occurrence: GB)
  Receive Date: 20231024
  Receipt Date: 20231127
  Transmission Date: 20240110
  Serious: Yes (Other)
  Sender: FDA-Public Use
  Company Number: GB-CLINIGEN-GB-CLI-2023-031133

PATIENT
  Age: 45 Year
  Sex: Female
  Weight: 63.8 kg

DRUGS (62)
  1. CYCLOPHOSPHAMIDE [Suspect]
     Active Substance: CYCLOPHOSPHAMIDE
     Indication: Neoplasm
     Dosage: 4044 MILLIGRAM, QD, ONCE
     Route: 050
     Dates: start: 20230905, end: 20230906
  2. ALDESLEUKIN [Suspect]
     Active Substance: ALDESLEUKIN
     Indication: Neoplasm
     Dosage: 39.6 UNK, BID
     Route: 065
     Dates: start: 20230913, end: 20230915
  3. PROLEUKIN [Suspect]
     Active Substance: ALDESLEUKIN
     Indication: Neoplasm
     Dosage: 39.6 MILION UNITS, BID
     Route: 050
     Dates: start: 20230913, end: 20230915
  4. FLUDARABINE [Suspect]
     Active Substance: FLUDARABINE PHOSPHATE
     Indication: Neoplasm
     Dosage: 43 MILLIGRAM, QD
     Route: 050
     Dates: start: 20230907, end: 20230911
  5. LIFILEUCEL [Suspect]
     Active Substance: LIFILEUCEL
     Indication: Neoplasm
     Dosage: 1 X 10^9 X 150 X10^9 AT ONCE, 3 BAGS
     Route: 050
     Dates: start: 20230912, end: 20230912
  6. PEMBROLIZUMAB [Suspect]
     Active Substance: PEMBROLIZUMAB
     Indication: Neoplasm
     Dosage: 400 MILLIGRAM, ONCE IN 6 WEEKS
     Route: 050
     Dates: start: 20230816
  7. ACYCLOVIR [Concomitant]
     Active Substance: ACYCLOVIR
     Indication: Antiviral prophylaxis
     Dosage: 1200 MG, UNK TID
     Route: 050
     Dates: start: 20230905
  8. Adcal [Concomitant]
     Indication: Vitamin supplementation
     Dosage: 2 (1 DOSAGE FORM, BID)
     Route: 050
     Dates: start: 20230907
  9. AMIKACIN [Concomitant]
     Active Substance: AMIKACIN
     Indication: Sepsis
     Dosage: 15 MILLIGRAM/KILOGRAM, ONLY ONCE
     Route: 050
     Dates: start: 20230914, end: 20230914
  10. BENZYDAMINE [Concomitant]
     Active Substance: BENZYDAMINE
     Indication: Oropharyngeal pain
     Dosage: UNK, SWISHA ND SPIT, PRN, AS NECESSARY
     Route: 065
     Dates: start: 20230909
  11. BETAMETHASONE VALERATE [Concomitant]
     Active Substance: BETAMETHASONE VALERATE
     Indication: Rash
     Dosage: UNK, QD
     Route: 061
     Dates: start: 20230919
  12. BETNOVATE [Concomitant]
     Active Substance: BETAMETHASONE
     Indication: Rash
     Dosage: UNK, TWICE A DAYS, AS PER NEED, AS NECESSARY
     Route: 050
     Dates: start: 20230914, end: 20230919
  13. BETNOVATE [Concomitant]
     Active Substance: BETAMETHASONE
     Dosage: UNK, PRN, AS NECESSARY
     Route: 050
     Dates: start: 20230920
  14. CHLORPHENIRAMINE MALEATE [Concomitant]
     Active Substance: CHLORPHENIRAMINE MALEATE
     Indication: Hypersensitivity
     Dosage: 4 MG, PRN, TABLET; AS NECESSARY
     Route: 050
     Dates: start: 20230912
  15. CHLORPHENIRAMINE MALEATE [Concomitant]
     Active Substance: CHLORPHENIRAMINE MALEATE
     Dosage: 10 MG, PRN, INJECTION, AS NECESSARY
     Route: 050
     Dates: start: 20230912
  16. CHLORPHENIRAMINE MALEATE [Concomitant]
     Active Substance: CHLORPHENIRAMINE MALEATE
     Dosage: 10 MG, PRN, INJECTION, AS NECESSARY
     Route: 050
     Dates: start: 20230912
  17. CHLORPHENIRAMINE MALEATE [Concomitant]
     Active Substance: CHLORPHENIRAMINE MALEATE
     Dosage: 5 MG, ONCE A DAY
     Route: 050
     Dates: start: 20230916, end: 20230917
  18. CHLORPHENIRAMINE MALEATE [Concomitant]
     Active Substance: CHLORPHENIRAMINE MALEATE
     Dosage: 4 MG, PRN, TABLET; AS NECESSARY
     Route: 050
     Dates: start: 20230917, end: 20230917
  19. CLOTRIMAZOLE [Concomitant]
     Active Substance: CLOTRIMAZOLE
     Indication: Rash
     Dosage: BID
     Route: 061
     Dates: start: 20230917
  20. COTRIMOXAZOLE [Concomitant]
     Active Substance: SULFAMETHOXAZOLE\TRIMETHOPRIM
     Indication: Antibiotic prophylaxis
     Dosage: 1440 MG, QD (480 MILLIGRAM, TWICE A DAY ON MON, WED, FRI)
     Route: 050
     Dates: start: 20230906
  21. ISOPROPYL MYRISTATE\MINERAL OIL [Concomitant]
     Active Substance: ISOPROPYL MYRISTATE\MINERAL OIL
     Indication: Rash
     Dosage: UNK, PRN, AS NECESSARY
     Route: 061
     Dates: start: 20230919
  22. FAMOTIDINE [Concomitant]
     Active Substance: FAMOTIDINE
     Indication: Reflux gastritis
     Dosage: 40 MG, QD (20 MILLIGRAM, BID)
     Route: 050
     Dates: start: 20230909
  23. FILGRASTIM [Concomitant]
     Active Substance: FILGRASTIM
     Indication: Neutrophil count decreased
     Dosage: 300 MICROGRAM, QD
     Route: 050
     Dates: start: 20230914, end: 20230915
  24. FLUCONAZOLE [Concomitant]
     Active Substance: FLUCONAZOLE
     Indication: Antiviral prophylaxis
     Dosage: 200 MILLIGRAM, QD
     Route: 050
     Dates: start: 20230915
  25. POTASSIUM CHLORIDE [Concomitant]
     Active Substance: POTASSIUM CHLORIDE
     Indication: Fluid replacement
     Dosage: 250 ML, ONCE ONLY
     Route: 050
     Dates: start: 20230914, end: 20230914
  26. POTASSIUM CHLORIDE [Concomitant]
     Active Substance: POTASSIUM CHLORIDE
     Dosage: 1000 MILLILITER, CONTINUOUS INFUSION
     Route: 065
     Dates: start: 20230915, end: 20230915
  27. POTASSIUM CHLORIDE [Concomitant]
     Active Substance: POTASSIUM CHLORIDE
     Dosage: 1000 ML, CONTINUOUS INFUSION
     Route: 050
     Dates: start: 20230918, end: 20230919
  28. POTASSIUM CHLORIDE [Concomitant]
     Active Substance: POTASSIUM CHLORIDE
     Dosage: 250 ML, ONCE ONLY
     Route: 050
     Dates: start: 20230914, end: 20230914
  29. POTASSIUM CHLORIDE [Concomitant]
     Active Substance: POTASSIUM CHLORIDE
     Dosage: 1000 ML AT ONCE OVER 6 HOURS
     Route: 050
     Dates: start: 20230914, end: 20230914
  30. POTASSIUM CHLORIDE [Concomitant]
     Active Substance: POTASSIUM CHLORIDE
     Dosage: 1000 ML AT ONCE
     Route: 065
     Dates: start: 20230912, end: 20230912
  31. POTASSIUM CHLORIDE [Concomitant]
     Active Substance: POTASSIUM CHLORIDE
     Dosage: 1000 ML AT ONCE OVER 6 HOURS
     Route: 065
     Dates: start: 20230914, end: 20230914
  32. CALCIUM CHLORIDE [Concomitant]
     Active Substance: CALCIUM CHLORIDE
     Indication: Fluid replacement
     Dosage: 250 ML, ONCE/SINGLE
     Route: 050
     Dates: start: 20230914, end: 20230914
  33. CALCIUM CHLORIDE [Concomitant]
     Active Substance: CALCIUM CHLORIDE
     Dosage: 1000 MILLILITER, CONTINUOUS INFUSION
     Route: 065
     Dates: start: 20230915, end: 20230915
  34. CALCIUM CHLORIDE [Concomitant]
     Active Substance: CALCIUM CHLORIDE
     Dosage: 1000 MILLILITER, CONTINUOUS INFUSION
     Route: 050
     Dates: start: 20230918, end: 20230919
  35. SODIUM LACTATE [Concomitant]
     Active Substance: SODIUM LACTATE
     Indication: Fluid replacement
     Dosage: 250 ML, ONCE ONLY
     Route: 050
     Dates: start: 20230914, end: 20230914
  36. SODIUM LACTATE [Concomitant]
     Active Substance: SODIUM LACTATE
     Dosage: 1000 MILLILITER, CONTINUOUS INFUSION
     Route: 065
     Dates: start: 20230915, end: 20230915
  37. SODIUM LACTATE [Concomitant]
     Active Substance: SODIUM LACTATE
     Dosage: 1000 ML, CONTINUOUS INFUSION
     Route: 050
     Dates: start: 20230918, end: 20230919
  38. LEVOMEPROMAZINE [Concomitant]
     Active Substance: LEVOMEPROMAZINE
     Indication: Nausea
     Dosage: 3.125 MG, PM, AS NECCESSARY
     Route: 050
     Dates: start: 20230906
  39. POLYETHYLENE GLYCOLS [Concomitant]
     Active Substance: POLYETHYLENE GLYCOLS
     Indication: Constipation
     Dosage: 1 SACHET EVERY 12H PER NEED; AS NECESSARY;)
     Route: 050
     Dates: start: 20230911
  40. MAGNESIUM SULFATE [Concomitant]
     Active Substance: MAGNESIUM SULFATE\MAGNESIUM SULFATE HEPTAHYDRATE
     Indication: Fluid replacement
     Dosage: 20 MMOL
     Route: 050
     Dates: start: 20230914, end: 20230914
  41. MEDIDERM [Concomitant]
     Indication: Rash
     Dosage: UNK, SACHET, PRN, AS NECESSARY
     Route: 061
     Dates: start: 20230916
  42. MENTHOL [Concomitant]
     Active Substance: MENTHOL
     Indication: Rash
     Dosage: UNK, EVERY 6 HOURS, PRN, AS NECESSARY
     Route: 061
     Dates: start: 20230915
  43. MENTHOL [Concomitant]
     Active Substance: MENTHOL
     Dosage: SACHET, PRN, AS NECESSARY
     Route: 061
     Dates: start: 20230916
  44. SODIUM CHLORIDE [Concomitant]
     Active Substance: SODIUM CHLORIDE
     Indication: Fluid replacement
     Dosage: 1000 ML AT ONCE
     Route: 050
     Dates: start: 20230913, end: 20230913
  45. ONDANSETRON [Concomitant]
     Active Substance: ONDANSETRON
     Indication: Nausea
     Dosage: 8 MG, Q8H
     Route: 050
     Dates: start: 20230908, end: 20230912
  46. ONDANSETRON [Concomitant]
     Active Substance: ONDANSETRON
     Dosage: 8 MG, PRN, AS NECESSARY
     Route: 050
     Dates: start: 20230912, end: 20230915
  47. ACETAMINOPHEN [Concomitant]
     Active Substance: ACETAMINOPHEN
     Indication: Headache
     Dosage: 1000 MG PRN EVERY 6 HOURS, AS NECESSARY
     Route: 050
     Dates: start: 20230906, end: 20230914
  48. ACETAMINOPHEN [Concomitant]
     Active Substance: ACETAMINOPHEN
     Dosage: 1000 MG, PRN EVERY 6 HOURS, AS NECESSARY
     Route: 050
     Dates: start: 20230914
  49. ACETAMINOPHEN [Concomitant]
     Active Substance: ACETAMINOPHEN
     Dosage: 1 GRAM, PRN EVERY 6 HOURS, AS NECESSARY
     Route: 050
     Dates: start: 20230914
  50. ACETAMINOPHEN [Concomitant]
     Active Substance: ACETAMINOPHEN
     Dosage: 1 GRAM, PRN EVERY 6 HOURS, AS NECESSARY
     Route: 050
     Dates: start: 20230914
  51. MEPERIDINE [Concomitant]
     Active Substance: MEPERIDINE
     Indication: Chills
     Dosage: 25-50 MG EVERY 4 HOURS IF NEEDED, AS NECESSARY
     Route: 050
     Dates: start: 20230913
  52. PIPERACILLIN AND TAZOBACTAM [Concomitant]
     Active Substance: PIPERACILLIN SODIUM\TAZOBACTAM SODIUM
     Indication: Sepsis
     Dosage: 4.5 GRAM, Q6H
     Route: 050
     Dates: start: 20230914, end: 20230919
  53. POTASSIUM BICARBONATE\POTASSIUM CHLORIDE [Concomitant]
     Active Substance: POTASSIUM BICARBONATE\POTASSIUM CHLORIDE
     Indication: Blood potassium decreased
     Dosage: 4 (2 DOSAGE FORM, BID)
     Route: 050
     Dates: start: 20230914, end: 20230914
  54. SUCRALFATE [Concomitant]
     Active Substance: SUCRALFATE
     Indication: Reflux gastritis
     Dosage: 1 GRAM, PRN EVERY 6 HOURS, ORAL SUSPENSION, AS NECESSARY
     Route: 050
     Dates: start: 20230911
  55. TINZAPARIN [Concomitant]
     Active Substance: TINZAPARIN
     Indication: Prophylaxis
     Dosage: 4500 UNITS, QD
     Route: 050
     Dates: start: 20230918
  56. ZOPICLONE [Concomitant]
     Active Substance: ZOPICLONE
     Indication: Insomnia
     Dosage: 3.75 MILLIGRAM, PRN AT NIGHT, AS NECESSARY
     Route: 050
     Dates: start: 20230917, end: 20230918
  57. CALCIUM CARBONATE [Concomitant]
     Active Substance: CALCIUM CARBONATE
     Indication: Vitamin supplementation
     Dosage: 4 DOSAGE FORM, QD (2 DF, BID)
     Route: 050
     Dates: start: 20230907
  58. CAPSAICIN [Concomitant]
     Active Substance: CAPSAICIN
     Indication: Rash
     Dosage: SACHET,AS NECESSARY
     Route: 061
     Dates: start: 20230916
  59. METHYL SALICYLATE [Concomitant]
     Active Substance: METHYL SALICYLATE
     Indication: Rash
     Dosage: SACHET,PRN AS NECESSARY
     Route: 061
     Dates: start: 20230916
  60. LIGHT LIQUID PARAFFIN [Concomitant]
     Indication: Rash
     Dosage: FOR SHOWERING, AS NECESSARY
     Route: 061
  61. DISODIUM HYDROGEN CITRATE [Concomitant]
     Active Substance: DISODIUM HYDROGEN CITRATE
     Indication: Central venous catheterisation
     Dosage: UNK,10000 UNITS, AS NEEDED, VIA CENTRAL VENOUS ACCESS DEVICES
     Route: 065
     Dates: start: 20230912
  62. TAUROLIDINE [Concomitant]
     Active Substance: TAUROLIDINE
     Indication: Central venous catheterisation
     Dosage: 10000 UNITS, AS NEEDED, VIA CENTRAL VENOUS ACCESS
     Route: 065
     Dates: start: 20230912

REACTIONS (1)
  - Uveitis [Not Recovered/Not Resolved]

NARRATIVE: CASE EVENT DATE: 20230919
